FAERS Safety Report 7410276-4 (Version None)
Quarter: 2011Q2

REPORT INFORMATION
  Report Type: 
  Country: None (occurrence: None)
  Receive Date: 20110412
  Receipt Date: 20110321
  Transmission Date: 20111010
  Serious: Yes (Other)
  Sender: FDA-Public Use
  Company Number: US-BAYER-2010-002535

PATIENT
  Sex: Female
  Weight: 85.261 kg

DRUGS (2)
  1. YASMIN [Suspect]
     Indication: PRODUCT USED FOR UNKNOWN INDICATION
     Dosage: UNK
     Dates: start: 20040101
  2. BLOOD PRESSURE MEDICATION [Concomitant]

REACTIONS (3)
  - DEPRESSION [None]
  - MYOCARDIAL INFARCTION [None]
  - THROMBOSIS [None]
